FAERS Safety Report 8136581-4 (Version None)
Quarter: 2012Q1

REPORT INFORMATION
  Report Type: 
  Country: None (occurrence: None)
  Receive Date: 20120214
  Receipt Date: 20120208
  Transmission Date: 20120608
  Serious: Yes (Death, Hospitalization, Other)
  Sender: FDA-Public Use
  Company Number: PHHY2011US57014

PATIENT
  Sex: Female

DRUGS (23)
  1. GLIMEPIRIDE [Concomitant]
     Dosage: 1 MG, UNK
  2. OXYGEN [Concomitant]
     Dosage: UNK UKN, UNK
     Route: 045
  3. DEMADEX [Concomitant]
     Dosage: UNK UKN, UNK
  4. CYMBALTA [Concomitant]
     Dosage: 60 MG, DAILY
  5. SPIRIVA [Concomitant]
     Dosage: UNK UKN, QD
  6. VITAMIN B COMPLEX CAP [Concomitant]
     Dosage: UNK UKN, UNK
  7. ADVAIR DISKUS 100/50 [Concomitant]
     Dosage: 250MCG FLUTICASONE PROPIONATE+ 50 MCG SALMETEROL XINAFOATE, BID
  8. LEXAPRO [Concomitant]
     Dosage: 10 MG, QHS
  9. DIGOXIN [Concomitant]
     Dosage: 0.125 MG, QD
  10. GILENYA [Suspect]
     Dosage: 0.5 MG, QD
     Route: 048
  11. ATENOLOL [Concomitant]
     Dosage: 12.5 MG, UNK
  12. ATROVENT [Concomitant]
     Dosage: UNK UKN, BID
  13. GILENYA [Suspect]
     Indication: MULTIPLE SCLEROSIS
     Dosage: 0.5 MG, QD
     Route: 048
  14. BONIVA [Concomitant]
     Dosage: 150 MG, UNK
  15. TORSEMIDE [Concomitant]
     Dosage: 10 MG, DAILY
  16. PLAVIX [Concomitant]
     Dosage: 75 MG, UNK
  17. JANUVIA [Concomitant]
     Dosage: 25 MG, UNK
  18. GILENYA [Suspect]
     Dosage: 0.5 MG, QD
     Route: 048
  19. CLONIDINE [Concomitant]
     Dosage: 0.1 MG, QD
  20. SIMVASTATIN [Concomitant]
     Dosage: 20 MG, UNK
  21. COMBIVENT [Concomitant]
     Dosage: UNK UKN, UNK
  22. TRACLEER [Concomitant]
     Dosage: UNK UKN, UNK
  23. REVATIO [Concomitant]
     Dosage: 20 MG, UNK

REACTIONS (17)
  - GLOMERULONEPHRITIS RAPIDLY PROGRESSIVE [None]
  - ARTERIOSCLEROSIS [None]
  - OEDEMA PERIPHERAL [None]
  - KIDNEY FIBROSIS [None]
  - GLOMERULAR FILTRATION RATE DECREASED [None]
  - HAEMATOCRIT DECREASED [None]
  - CONSTIPATION [None]
  - RED CELL DISTRIBUTION WIDTH INCREASED [None]
  - BLOOD GLUCOSE INCREASED [None]
  - BASE EXCESS [None]
  - RED BLOOD CELL COUNT DECREASED [None]
  - DEATH [None]
  - RENAL FAILURE ACUTE [None]
  - PLATELET COUNT DECREASED [None]
  - HAEMOGLOBIN DECREASED [None]
  - LYMPHOCYTE COUNT DECREASED [None]
  - DYSPNOEA [None]
